FAERS Safety Report 9637062 (Version 1)
Quarter: 2013Q4

REPORT INFORMATION
  Report Type: Spontaneous
  Country: US (occurrence: US)
  Receive Date: 20131022
  Receipt Date: 20131022
  Transmission Date: 20140711
  Serious: Yes (Other)
  Sender: FDA-Public Use
  Company Number: US-RB-058882-13

PATIENT
  Age: 80 Year
  Sex: Male

DRUGS (1)
  1. MUCINEX MAXIMUM STRENGTH [Suspect]
     Indication: PRODUCT USED FOR UNKNOWN INDICATION
     Dosage: TOOK THE CRUSHED PRODUCT ON UNKNOWN DATE.
     Route: 048

REACTIONS (2)
  - Epistaxis [Recovered/Resolved]
  - Wrong technique in drug usage process [Recovered/Resolved]
